FAERS Safety Report 4677764-5 (Version None)
Quarter: 2005Q2

REPORT INFORMATION
  Report Type: 
  Country: None (occurrence: None)
  Receive Date: 20050527
  Receipt Date: 20050527
  Transmission Date: 20051028
  Serious: Yes (Death)
  Sender: FDA-Public Use
  Company Number: None

PATIENT
  Age: 44 Year
  Sex: Female
  Weight: 47.6277 kg

DRUGS (3)
  1. EFFEXOR XR [Suspect]
     Indication: DEPRESSION
     Dosage: 75 MG AND 150 MG AND 75 MG
  2. VENLAFAXINE HCL [Suspect]
     Dosage: 150 MG +?
  3. FELDENE [Concomitant]

REACTIONS (9)
  - AGITATION [None]
  - ANOREXIA [None]
  - ANXIETY [None]
  - DEPRESSION [None]
  - DISTURBANCE IN ATTENTION [None]
  - INFLUENZA [None]
  - INSOMNIA [None]
  - PHARYNGITIS [None]
  - SUICIDAL IDEATION [None]
